FAERS Safety Report 5988611-3 (Version None)
Quarter: 2008Q4

REPORT INFORMATION
  Report Type: 
  Country: None (occurrence: None)
  Receive Date: 20081210
  Receipt Date: 20081128
  Transmission Date: 20090506
  Serious: Yes (Hospitalization)
  Sender: FDA-Public Use
  Company Number: DK-BAYER-DK-2007-022254

PATIENT
  Age: 31 Year
  Sex: Female
  Weight: 65 kg

DRUGS (3)
  1. YASMIN [Suspect]
     Indication: ORAL CONTRACEPTION
     Route: 048
     Dates: start: 20070421, end: 20070530
  2. FLORINEF [Concomitant]
     Indication: ADDISON'S DISEASE
     Route: 048
     Dates: start: 19990101
  3. HYDROKORTISON ^NYCOMED^ [Concomitant]
     Indication: ADDISON'S DISEASE
     Route: 048
     Dates: start: 19990101

REACTIONS (6)
  - CHEST DISCOMFORT [None]
  - DEEP VEIN THROMBOSIS [None]
  - DYSPNOEA [None]
  - LIMB DISCOMFORT [None]
  - SENSORY DISTURBANCE [None]
  - SYNCOPE [None]
